FAERS Safety Report 18911486 (Version 4)
Quarter: 2022Q3

REPORT INFORMATION
  Report Type: Report from Study
  Country: US (occurrence: US)
  Receive Date: 20210218
  Receipt Date: 20220816
  Transmission Date: 20221026
  Serious: Yes (Hospitalization, Other)
  Sender: FDA-Public Use
  Company Number: US-TAKEDA-US202005427

PATIENT
  Sex: Male
  Weight: 79.365 kg

DRUGS (67)
  1. HUMAN IMMUNOGLOBULIN G\HYALURONIDASE RECOMBINANT HUMAN [Suspect]
     Active Substance: HUMAN IMMUNOGLOBULIN G\HYALURONIDASE RECOMBINANT HUMAN
     Indication: Primary immunodeficiency syndrome
     Dosage: 40 GRAM, 4/WEEK
     Route: 058
     Dates: start: 20130225
  2. HUMAN IMMUNOGLOBULIN G\HYALURONIDASE RECOMBINANT HUMAN [Suspect]
     Active Substance: HUMAN IMMUNOGLOBULIN G\HYALURONIDASE RECOMBINANT HUMAN
     Indication: Immunodeficiency common variable
  3. HUMAN IMMUNOGLOBULIN G\HYALURONIDASE RECOMBINANT HUMAN [Suspect]
     Active Substance: HUMAN IMMUNOGLOBULIN G\HYALURONIDASE RECOMBINANT HUMAN
     Indication: Hypogammaglobulinaemia
  4. HUMAN IMMUNOGLOBULIN G\HYALURONIDASE RECOMBINANT HUMAN [Suspect]
     Active Substance: HUMAN IMMUNOGLOBULIN G\HYALURONIDASE RECOMBINANT HUMAN
     Indication: Immunodeficiency
  5. D-MANNOSE [Concomitant]
  6. DIETARY SUPPLEMENT [Concomitant]
     Active Substance: DIETARY SUPPLEMENT
  7. UNSPECIFIED INGREDIENT [Concomitant]
     Active Substance: UNSPECIFIED INGREDIENT
  8. PAIN RELIEF NOS [Concomitant]
     Active Substance: CAMPHOR (SYNTHETIC)\LEVOMENTHOL\MENTHYL SALICYLATE OR CAMPHOR (SYNTHETIC)\MENTHOL\MENTHYL SALICYLATE
  9. GAS-X [Concomitant]
     Active Substance: DIMETHICONE
  10. MAALOX ANTACID [Concomitant]
     Active Substance: ALUMINUM HYDROXIDE\DIMETHICONE\MAGNESIUM HYDROXIDE
  11. ECONAZOLE [Concomitant]
     Active Substance: ECONAZOLE
  12. VENTOLIN [Concomitant]
     Active Substance: ALBUTEROL SULFATE
  13. XYZALIN [Concomitant]
  14. ZINC [Concomitant]
     Active Substance: ZINC
  15. CLINDAMYCIN [Concomitant]
     Active Substance: CLINDAMYCIN
  16. OXYCODONE [Concomitant]
     Active Substance: OXYCODONE
  17. MIRALAX [Concomitant]
     Active Substance: POLYETHYLENE GLYCOL 3350
  18. MICONAZOLE NITRATE [Concomitant]
     Active Substance: MICONAZOLE NITRATE
  19. MICONAZOLE [Concomitant]
     Active Substance: MICONAZOLE
  20. ANUSOL-HC [Concomitant]
     Active Substance: HYDROCORTISONE
  21. TRAZODONE [Concomitant]
     Active Substance: TRAZODONE HYDROCHLORIDE
  22. Iron plus [Concomitant]
  23. FLUTICASONE [Concomitant]
     Active Substance: FLUTICASONE
  24. BENZOYL PEROXIDE [Concomitant]
     Active Substance: BENZOYL PEROXIDE
  25. IPRATROPIUM BROMIDE [Concomitant]
     Active Substance: IPRATROPIUM BROMIDE
  26. CRANBERRY [Concomitant]
     Active Substance: CRANBERRY
  27. METHENAMINE [Concomitant]
     Active Substance: METHENAMINE
  28. VITAMIN C [Concomitant]
     Active Substance: ASCORBIC ACID
  29. ACETAMINOPHEN [Concomitant]
     Active Substance: ACETAMINOPHEN
  30. DULOXETINE [Concomitant]
     Active Substance: DULOXETINE
  31. LATUDA [Concomitant]
     Active Substance: LURASIDONE HYDROCHLORIDE
  32. LYCOPENE [Concomitant]
     Active Substance: LYCOPENE
  33. CEFDINIR [Concomitant]
     Active Substance: CEFDINIR
  34. DIPHENHYDRAMINE [Concomitant]
     Active Substance: DIPHENHYDRAMINE
  35. SODIUM CHLORIDE [Concomitant]
     Active Substance: SODIUM CHLORIDE
  36. EPINEPHRINE [Concomitant]
     Active Substance: EPINEPHRINE
  37. LUTEIN [Concomitant]
     Active Substance: LUTEIN
  38. ZEGERID [Concomitant]
     Active Substance: OMEPRAZOLE\SODIUM BICARBONATE
  39. Glucosamine + msm [Concomitant]
  40. HERBALS\TURMERIC [Concomitant]
     Active Substance: HERBALS\TURMERIC
  41. MODAFINIL [Concomitant]
     Active Substance: MODAFINIL
  42. COUMADIN [Concomitant]
     Active Substance: WARFARIN SODIUM
  43. TRAMADOL [Concomitant]
     Active Substance: TRAMADOL
  44. AMPYRA [Concomitant]
     Active Substance: DALFAMPRIDINE
  45. FISH OIL [Concomitant]
     Active Substance: FISH OIL
  46. TESTOSTERONE [Concomitant]
     Active Substance: TESTOSTERONE
  47. TROSPIUM [Concomitant]
     Active Substance: TROSPIUM
  48. RECLAST [Concomitant]
     Active Substance: ZOLEDRONIC ACID
  49. VITAMIN D3 [Concomitant]
     Active Substance: CHOLECALCIFEROL
  50. STIOLTO RESPIMAT [Concomitant]
     Active Substance: OLODATEROL HYDROCHLORIDE\TIOTROPIUM BROMIDE MONOHYDRATE
  51. CO-Q10-CHLORELLA [Concomitant]
  52. VITAMIN B12 PLUS FOLIC ACID [Concomitant]
  53. MISOPROSTOL [Concomitant]
     Active Substance: MISOPROSTOL
  54. MELATONIN [Concomitant]
     Active Substance: MELATONIN
  55. MUCUS RELIEF [Concomitant]
     Active Substance: GUAIFENESIN
  56. LISINOPRIL [Concomitant]
     Active Substance: LISINOPRIL
  57. LINZESS [Concomitant]
     Active Substance: LINACLOTIDE
  58. CREATINE [Concomitant]
     Active Substance: CREATINE
  59. DILTIAZEM [Concomitant]
     Active Substance: DILTIAZEM
  60. GABAPENTIN [Concomitant]
     Active Substance: GABAPENTIN
  61. PRAVASTATIN [Concomitant]
     Active Substance: PRAVASTATIN
  62. OMEPRAZOLE [Concomitant]
     Active Substance: OMEPRAZOLE
  63. MAGNESIUM [Concomitant]
     Active Substance: MAGNESIUM
  64. AZELASTINE [Concomitant]
     Active Substance: AZELASTINE
  65. LEVOMEFOLIC ACID [Concomitant]
     Active Substance: LEVOMEFOLIC ACID
  66. VITAMINS [Concomitant]
     Active Substance: VITAMINS
  67. DIETARY SUPPLEMENT\RESVERATROL [Concomitant]
     Active Substance: DIETARY SUPPLEMENT\RESVERATROL

REACTIONS (8)
  - Infection [Unknown]
  - Spinal cord injury [Unknown]
  - Pneumonia [Unknown]
  - Hepatic enzyme increased [Recovered/Resolved]
  - Abdominal discomfort [Unknown]
  - Hypoaesthesia [Unknown]
  - Adverse event [Unknown]
  - Wound [Unknown]
